FAERS Safety Report 25958706 (Version 1)
Quarter: 2025Q4

REPORT INFORMATION
  Report Type: Report from Study
  Country: CA (occurrence: CA)
  Receive Date: 20251024
  Receipt Date: 20251024
  Transmission Date: 20260118
  Serious: Yes (Hospitalization)
  Sender: HLS THERAPEUTICS
  Company Number: CA-HLS-202502775

PATIENT
  Sex: Male

DRUGS (3)
  1. CLOZARIL [Suspect]
     Active Substance: CLOZAPINE
     Indication: Product used for unknown indication
     Route: 048
     Dates: start: 20141210
  2. Ertapenine [Concomitant]
     Indication: Product used for unknown indication
     Dosage: FOR 2 DAYS
     Route: 065
  3. Ceftriazone [Concomitant]
     Indication: Product used for unknown indication
     Dosage: FOR 3 DAYS
     Route: 042

REACTIONS (1)
  - Tooth infection [Unknown]
